FAERS Safety Report 4530599-6 (Version None)
Quarter: 2004Q4

REPORT INFORMATION
  Report Type: 
  Country: None (occurrence: None)
  Receive Date: 20041217
  Receipt Date: 20041217
  Transmission Date: 20050328
  Serious: Yes (Other)
  Sender: FDA-Public Use
  Company Number: None

PATIENT
  Sex: Female
  Weight: 75.2971 kg

DRUGS (5)
  1. SUMATRIPTAN [Suspect]
     Indication: HEADACHE
     Dosage: ORAL
     Route: 048
  2. MOTRIN [Concomitant]
  3. EXCEDRIN (MIGRAINE) [Concomitant]
  4. XENADRINE -OTC- [Concomitant]
  5. ALESSE -BCP- [Concomitant]

REACTIONS (4)
  - NAUSEA [None]
  - NECK PAIN [None]
  - SELF-MEDICATION [None]
  - VOMITING [None]
